FAERS Safety Report 5321284-1 (Version None)
Quarter: 2007Q2

REPORT INFORMATION
  Report Type: 
  Country: None (occurrence: None)
  Receive Date: 20070507
  Receipt Date: 20070507
  Transmission Date: 20071010
  Serious: No
  Sender: FDA-Public Use
  Company Number: None

PATIENT
  Age: 40 Year
  Sex: Male
  Weight: 113.3993 kg

DRUGS (4)
  1. SERTRALINE HCL [Suspect]
     Indication: DEPRESSION
     Dosage: 1/2 TAB FOR 3 DAY THEN 1 TAB/D PO
     Route: 048
     Dates: start: 20070402, end: 20070425
  2. BUPROPION HCL [Suspect]
     Indication: DEPRESSION
     Dosage: 1 TAB/D FOR 3 DAYS THEN 1 BID PO
     Route: 048
     Dates: start: 20070320, end: 20070420
  3. LISINOPRIL [Concomitant]
  4. FINASTERIDE [Concomitant]

REACTIONS (8)
  - ASTHENIA [None]
  - BALANCE DISORDER [None]
  - COORDINATION ABNORMAL [None]
  - DIZZINESS [None]
  - GAIT DISTURBANCE [None]
  - IMPAIRED WORK ABILITY [None]
  - MOVEMENT DISORDER [None]
  - VERTIGO [None]
